FAERS Safety Report 12890802 (Version 4)
Quarter: 2017Q1

REPORT INFORMATION
  Report Type: Spontaneous
  Country: US (occurrence: US)
  Receive Date: 20161027
  Receipt Date: 20170227
  Transmission Date: 20170428
  Serious: Yes (Hospitalization, Other)
  Sender: FDA-Public Use
  Company Number: US-PFIZER INC-2016501114

PATIENT
  Sex: Male

DRUGS (2)
  1. LYRICA [Suspect]
     Active Substance: PREGABALIN
     Indication: SLEEP DISORDER
  2. LYRICA [Suspect]
     Active Substance: PREGABALIN
     Indication: NEUROPATHY PERIPHERAL
     Dosage: 80 MG, DAILY (20 MG MORNING, 20 MG NOON, 40 MG NIGHT)

REACTIONS (7)
  - Drug dependence [Unknown]
  - Osteoarthritis [Unknown]
  - Back injury [Not Recovered/Not Resolved]
  - Fall [Not Recovered/Not Resolved]
  - Movement disorder [Unknown]
  - Sensory loss [Not Recovered/Not Resolved]
  - Abasia [Not Recovered/Not Resolved]

NARRATIVE: CASE EVENT DATE: 20160715
